FAERS Safety Report 5513506-9 (Version None)
Quarter: 2007Q4

REPORT INFORMATION
  Report Type: 
  Country: None (occurrence: None)
  Receive Date: 20071108
  Receipt Date: 20071030
  Transmission Date: 20080405
  Serious: Yes (Hospitalization)
  Sender: FDA-Public Use
  Company Number: 2007AL004637

PATIENT
  Age: 19 Year
  Sex: Female

DRUGS (2)
  1. DIAZEPAM [Suspect]
  2. CIPRAMIL [Concomitant]

REACTIONS (1)
  - AMNESIA [None]
